FAERS Safety Report 24961922 (Version 2)
Quarter: 2025Q1

REPORT INFORMATION
  Report Type: Spontaneous
  Country: US (occurrence: US)
  Receive Date: 20250212
  Receipt Date: 20250214
  Transmission Date: 20250409
  Serious: Yes (Life-Threatening, Hospitalization, Other)
  Sender: PFIZER
  Company Number: US-MLMSERVICE-20250203-PI388910-00201-1

PATIENT
  Age: 20 Year
  Sex: Female

DRUGS (2)
  1. LIDOCAINE HYDROCHLORIDE [Suspect]
     Active Substance: LIDOCAINE HYDROCHLORIDE
     Indication: Local anaesthesia
  2. OXYTOCIN [Concomitant]
     Active Substance: OXYTOCIN

REACTIONS (3)
  - Status epilepticus [Recovered/Resolved]
  - Local anaesthetic systemic toxicity [Recovered/Resolved]
  - Aspiration [Unknown]
